FAERS Safety Report 5597467-2 (Version None)
Quarter: 2007Q4

REPORT INFORMATION
  Report Type: 
  Country: None (occurrence: None)
  Receive Date: 20071221
  Receipt Date: 20071008
  Transmission Date: 20080405
  Serious: No
  Sender: FDA-Public Use
  Company Number: SPV1-2007-04490

PATIENT
  Age: 7 Year
  Sex: Male
  Weight: 20.4 kg

DRUGS (2)
  1. VYVANSE [Suspect]
     Indication: ATTENTION DEFICIT/HYPERACTIVITY DISORDER
     Dosage: 50 MG, 1X/DAY:QD, ORAL
     Route: 048
     Dates: start: 20071007
  2. ADDERALL XR (AMPHETAMINE ASPARTATE,AMPHETAMINE SULFATE,DEXTROAMPHETAMI [Concomitant]

REACTIONS (1)
  - MYDRIASIS [None]
